FAERS Safety Report 19195131 (Version 1)
Quarter: 2021Q2

REPORT INFORMATION
  Report Type: Spontaneous
  Country: CA (occurrence: CA)
  Receive Date: 20210429
  Receipt Date: 20210429
  Transmission Date: 20210717
  Serious: Yes (Life-Threatening, Hospitalization, Other)
  Sender: FDA-Public Use
  Company Number: CA-IGSA-BIG0014213

PATIENT
  Sex: Female

DRUGS (3)
  1. GAMMAGARD [Suspect]
     Active Substance: HUMAN IMMUNOGLOBULIN G
     Indication: PRODUCT USED FOR UNKNOWN INDICATION
     Dosage: UNK
     Route: 042
  2. HUMAN NORMAL IMMUNOGLOBULIN (IV) [Suspect]
     Active Substance: HUMAN IMMUNOGLOBULIN G
     Indication: PRODUCT USED FOR UNKNOWN INDICATION
     Dosage: UNK
     Route: 042
  3. PLATELETS [Concomitant]
     Active Substance: HUMAN PLATELET, ALLOGENIC
     Dosage: UNK
     Route: 042

REACTIONS (16)
  - Blood pressure increased [Unknown]
  - Bronchospasm [Unknown]
  - Tachycardia [Unknown]
  - Transfusion-related circulatory overload [Unknown]
  - Dyspnoea [Unknown]
  - Respiratory rate increased [Unknown]
  - Transfusion-associated dyspnoea [Unknown]
  - Body temperature increased [Unknown]
  - Febrile nonhaemolytic transfusion reaction [Unknown]
  - Heart rate increased [Unknown]
  - Hypoxia [Unknown]
  - Oxygen saturation decreased [Unknown]
  - Pyrexia [Unknown]
  - Eye swelling [Unknown]
  - Angioedema [Unknown]
  - Wheezing [Unknown]
